FAERS Safety Report 15482706 (Version 1)
Quarter: 2018Q4

REPORT INFORMATION
  Report Type: Spontaneous
  Country: CH (occurrence: CH)
  Receive Date: 20181010
  Receipt Date: 20181010
  Transmission Date: 20190205
  Serious: Yes (Hospitalization)
  Sender: FDA-Public Use
  Company Number: CH-NOVAST LABORATORIES, LTD-CH-2018NOV000356

PATIENT

DRUGS (1)
  1. CARISOPRODOL\ASPIRIN [Suspect]
     Active Substance: ASPIRIN\CARISOPRODOL
     Indication: ANTICOAGULANT THERAPY
     Dosage: 100 MG, UNK

REACTIONS (1)
  - Renal haematoma [Unknown]
